FAERS Safety Report 6353304-X (Version None)
Quarter: 2009Q3

REPORT INFORMATION
  Report Type: 
  Country: None (occurrence: None)
  Receive Date: 20090912
  Receipt Date: 20090622
  Transmission Date: 20100115
  Serious: No
  Sender: FDA-Public Use
  Company Number: US-ABBOTT-08P-163-0459594-00

PATIENT
  Sex: Female
  Weight: 61.29 kg

DRUGS (4)
  1. HUMIRA [Suspect]
     Indication: PSORIATIC ARTHROPATHY
     Route: 058
     Dates: start: 20080604
  2. VICODIN [Concomitant]
     Indication: PAIN
     Dosage: 1 TAB EVERY 3-4 HOURS PRN
     Route: 048
     Dates: start: 20080101
  3. PHENERGAN [Concomitant]
     Indication: NAUSEA
     Route: 048
     Dates: start: 20070101
  4. LORAZEPAM [Concomitant]
     Indication: ANXIETY
     Route: 048
     Dates: start: 20080401

REACTIONS (2)
  - ACCIDENTAL EXPOSURE [None]
  - CONTUSION [None]
